FAERS Safety Report 7214672-X (Version None)
Quarter: 2011Q1

REPORT INFORMATION
  Report Type: 
  Country: None (occurrence: None)
  Receive Date: 20110107
  Receipt Date: 20110104
  Transmission Date: 20110831
  Serious: Yes (Hospitalization)
  Sender: FDA-Public Use
  Company Number: US-JNJFOC-20110100977

PATIENT
  Sex: Male
  Weight: 99.79 kg

DRUGS (2)
  1. LEVAQUIN [Suspect]
     Indication: INFLUENZA
     Route: 048
  2. ALBUTEROL [Concomitant]
     Indication: RESPIRATORY DISORDER
     Route: 048

REACTIONS (4)
  - ABASIA [None]
  - TENDON DISORDER [None]
  - PNEUMONIA [None]
  - WEIGHT DECREASED [None]
